FAERS Safety Report 4450400-9 (Version None)
Quarter: 2004Q3

REPORT INFORMATION
  Report Type: 
  Country: None (occurrence: None)
  Receive Date: 20040914
  Receipt Date: 20040908
  Transmission Date: 20050211
  Serious: Yes (Hospitalization)
  Sender: FDA-Public Use
  Company Number: MK200409-0071-1

PATIENT
  Age: 33 Year
  Sex: Female

DRUGS (1)
  1. ANAFRANIL [Suspect]
     Indication: DEPRESSION
     Dosage: 25 MG, DAILY
     Dates: start: 19870101

REACTIONS (5)
  - COMA [None]
  - DRUG TOXICITY [None]
  - HYPOKALAEMIA [None]
  - HYPONATRAEMIA [None]
  - MUSCLE CRAMP [None]
